FAERS Safety Report 5716459-3 (Version None)
Quarter: 2008Q2

REPORT INFORMATION
  Report Type: 
  Country: None (occurrence: None)
  Receive Date: 20080424
  Receipt Date: 20080414
  Transmission Date: 20081010
  Serious: Yes (Hospitalization)
  Sender: FDA-Public Use
  Company Number: PHBS2008IT04059

PATIENT
  Age: 27 Year
  Sex: Female

DRUGS (3)
  1. CARBAMAZEPINE [Suspect]
     Indication: PSYCHOTIC DISORDER
     Route: 065
     Dates: start: 20040801
  2. VALPROATE SODIUM [Suspect]
     Indication: PSYCHOTIC DISORDER
     Dosage: UNK, UNK
     Route: 065
     Dates: start: 20040801
  3. LEVOSULPIRIDE [Suspect]
     Indication: PSYCHOTIC DISORDER
     Route: 065
     Dates: start: 20040801

REACTIONS (26)
  - ALANINE AMINOTRANSFERASE INCREASED [None]
  - APATHY [None]
  - ASPARTATE AMINOTRANSFERASE INCREASED [None]
  - BLOOD BICARBONATE DECREASED [None]
  - BLOOD OSMOLARITY INCREASED [None]
  - BLOOD PH DECREASED [None]
  - BLOOD THYROID STIMULATING HORMONE INCREASED [None]
  - BRADYCARDIA [None]
  - BREATH ODOUR [None]
  - DIABETIC KETOACIDOSIS [None]
  - ELECTROCARDIOGRAM REPOLARISATION ABNORMALITY [None]
  - GLYCOSURIA [None]
  - HAEMOGLOBIN DECREASED [None]
  - HYPERGLYCAEMIA [None]
  - HYPOTHYROIDISM [None]
  - KETONURIA [None]
  - MEAN CELL VOLUME INCREASED [None]
  - MENTAL DISORDER [None]
  - MUCOSAL DRYNESS [None]
  - MYXOEDEMA COMA [None]
  - PALLOR [None]
  - PERIORBITAL OEDEMA [None]
  - PERIPHERAL COLDNESS [None]
  - THYROXINE FREE DECREASED [None]
  - TRI-IODOTHYRONINE FREE DECREASED [None]
  - WHITE BLOOD CELL COUNT INCREASED [None]
